FAERS Safety Report 9615147 (Version 1)
Quarter: 2013Q4

REPORT INFORMATION
  Report Type: Spontaneous
  Country: US (occurrence: None)
  Receive Date: 20131009
  Receipt Date: 20131009
  Transmission Date: 20140711
  Serious: Yes (Other)
  Sender: FDA-Public Use
  Company Number: None

PATIENT
  Age: 105 Year
  Sex: Female
  Weight: 22.68 kg

DRUGS (8)
  1. FLUOCINOLONE [Suspect]
     Indication: ECZEMA
     Dosage: APPLY AS NEEDED, EVERY OTHER NIGHT AT BATH, ON THE SKIN
     Route: 061
     Dates: start: 20120521, end: 20120608
  2. LEVECETERIZINE [Concomitant]
  3. ALLERGY SHOTS [Concomitant]
  4. EPICERAM LOTION [Concomitant]
  5. MULTIVITAMINS [Concomitant]
  6. BENADRYL [Concomitant]
  7. CLOROX BATHS [Concomitant]
  8. AVEENO ECZEMA LOTION [Concomitant]

REACTIONS (2)
  - Eczema [None]
  - Condition aggravated [None]
